FAERS Safety Report 9280631 (Version 1)
Quarter: 2013Q2

REPORT INFORMATION
  Report Type: Spontaneous
  Country: US (occurrence: US)
  Receive Date: 20130509
  Receipt Date: 20130509
  Transmission Date: 20140414
  Serious: No
  Sender: FDA-Public Use
  Company Number: US-PFIZER INC-2013142943

PATIENT
  Age: 49 Year
  Sex: Female
  Weight: 83.9 kg

DRUGS (5)
  1. NEURONTIN [Suspect]
     Dosage: 600 MG, 3X/DAY
     Route: 048
     Dates: end: 201304
  2. NEURONTIN [Suspect]
     Dosage: 600 MG, 1X/DAY
     Route: 048
     Dates: start: 201304
  3. MOBIC [Concomitant]
     Indication: INFLAMMATION
     Dosage: UNK
  4. IBUPROFEN [Concomitant]
     Dosage: UNK
  5. TYLENOL [Concomitant]
     Dosage: UNK

REACTIONS (2)
  - Intentional drug misuse [Unknown]
  - Pain in extremity [Unknown]
